FAERS Safety Report 8196191-X (Version None)
Quarter: 2012Q1

REPORT INFORMATION
  Report Type: 
  Country: None (occurrence: None)
  Receive Date: 20120307
  Receipt Date: 20120307
  Transmission Date: 20120608
  Serious: No
  Sender: FDA-Public Use
  Company Number: None

PATIENT
  Age: 18 Year
  Sex: Female

DRUGS (2)
  1. MINOCYCLINE HCL [Suspect]
     Dates: start: 20060601, end: 20070101
  2. CONCERTA [Concomitant]

REACTIONS (4)
  - LIVER DISORDER [None]
  - SYSTEMIC LUPUS ERYTHEMATOSUS [None]
  - HEPATOCELLULAR INJURY [None]
  - AUTOIMMUNE HEPATITIS [None]
